FAERS Safety Report 12364991 (Version 1)
Quarter: 2016Q2

REPORT INFORMATION
  Report Type: Spontaneous
  Country: US (occurrence: US)
  Receive Date: 20160513
  Receipt Date: 20160513
  Transmission Date: 20160815
  Serious: No
  Sender: FDA-Public Use
  Company Number: US-BAYER-2016-092610

PATIENT
  Age: 59 Year
  Sex: Female

DRUGS (2)
  1. ALEVE [Suspect]
     Active Substance: NAPROXEN SODIUM
     Indication: HIP FRACTURE
  2. ONE A DAY [Concomitant]

REACTIONS (2)
  - Anal incontinence [None]
  - Product use issue [None]
